FAERS Safety Report 8897557 (Version 1)
Quarter: 2012Q4

REPORT INFORMATION
  Report Type: Spontaneous
  Country: CA (occurrence: None)
  Receive Date: 20121106
  Receipt Date: 20121106
  Transmission Date: 20130627
  Serious: Yes (Hospitalization, Other)
  Sender: FDA-Public Use
  Company Number: 2012/160

PATIENT
  Age: 39 Year
  Sex: Female

DRUGS (10)
  1. NARATRIPTAN [Suspect]
     Indication: MIGRAINE WITHOUT AURA
  2. ATORVASTATIN [Concomitant]
  3. TRIAMTERENE [Concomitant]
  4. HYDROCHLOROTHIAZIDE [Concomitant]
  5. TOPIRAMATE [Concomitant]
  6. METHADONE [Concomitant]
  7. QUETIAPINE [Concomitant]
  8. VENLAFAXINE [Concomitant]
  9. SERTRALINE [Concomitant]
  10. BACLOFEN [Concomitant]

REACTIONS (2)
  - Subarachnoid haemorrhage [None]
  - Cerebral vasoconstriction [None]
